FAERS Safety Report 11567301 (Version 2)
Quarter: 2019Q1

REPORT INFORMATION
  Report Type: Spontaneous
  Country: US (occurrence: US)
  Receive Date: 20150929
  Receipt Date: 20190222
  Transmission Date: 20190417
  Serious: No
  Sender: FDA-Public Use
  Company Number: US-ASTRAZENECA-2015SE92103

PATIENT
  Sex: Male
  Weight: 79 kg

DRUGS (5)
  1. EXCEDRIN [Concomitant]
     Active Substance: ACETAMINOPHEN\ASPIRIN\CAFFEINE
     Indication: MIGRAINE
  2. NEXIUM [Suspect]
     Active Substance: ESOMEPRAZOLE MAGNESIUM
     Indication: GASTROOESOPHAGEAL REFLUX DISEASE
     Route: 048
     Dates: start: 2001
  3. PRILOSEC [Suspect]
     Active Substance: OMEPRAZOLE MAGNESIUM
     Dosage: GENERIC 40.0MG UNKNOWN
     Route: 048
  4. NORPACE GENERIC (DISOPYRAMIDE) [Concomitant]
     Route: 002
  5. NEXIUM 24HR [Suspect]
     Active Substance: ESOMEPRAZOLE MAGNESIUM
     Route: 048

REACTIONS (8)
  - Muscle disorder [Unknown]
  - Gastrooesophageal reflux disease [Unknown]
  - Blood cholesterol increased [Unknown]
  - Nasopharyngitis [Unknown]
  - Headache [Unknown]
  - Intentional product misuse [Unknown]
  - Nausea [Unknown]
  - Drug ineffective [Unknown]
